FAERS Safety Report 10434550 (Version 2)
Quarter: 2014Q3

REPORT INFORMATION
  Report Type: Report from Study
  Country: KE (occurrence: KE)
  Receive Date: 20140905
  Receipt Date: 20140912
  Transmission Date: 20150326
  Serious: Yes (Hospitalization, Other)
  Sender: FDA-Public Use
  Company Number: KE-GILEAD-2014-0114153

PATIENT
  Age: 0 Day
  Sex: Female
  Weight: 3.1 kg

DRUGS (6)
  1. FERROUS SULFATE [Concomitant]
     Active Substance: FERROUS SULFATE\FERROUS SULFATE, DRIED
     Dosage: UNK
     Route: 064
     Dates: end: 20140723
  2. TETANUS VACCINE [Concomitant]
     Active Substance: CLOSTRIDIUM TETANI TOXOID ANTIGEN (FORMALDEHYDE INACTIVATED)
     Dosage: UNK
     Route: 064
     Dates: end: 20140723
  3. FOLIC ACID. [Concomitant]
     Active Substance: FOLIC ACID
     Dosage: UNK
     Route: 064
     Dates: end: 20140723
  4. EMTRICITABINE/TENOFOVIR DISOPROXIL FUMARATE [Suspect]
     Active Substance: EMTRICITABINE\TENOFOVIR DISOPROXIL
     Dosage: UNK
     Route: 064
     Dates: start: 20131015, end: 20131203
  5. FANSIDAR [Concomitant]
     Active Substance: PYRIMETHAMINE\SULFADOXINE
     Indication: MALARIA PROPHYLAXIS
     Dosage: UNK
     Route: 064
     Dates: end: 20140723
  6. EMTRICITABINE/TENOFOVIR DISOPROXIL FUMARATE [Suspect]
     Active Substance: EMTRICITABINE\TENOFOVIR DISOPROXIL
     Indication: PROPHYLAXIS AGAINST HIV INFECTION
     Dosage: UNK
     Route: 064
     Dates: start: 20140424, end: 20140722

REACTIONS (1)
  - Foetal distress syndrome [Recovered/Resolved]

NARRATIVE: CASE EVENT DATE: 20140723
